FAERS Safety Report 9999328 (Version 1)
Quarter: 2014Q1

REPORT INFORMATION
  Report Type: Spontaneous
  Country: US (occurrence: US)
  Receive Date: 20140312
  Receipt Date: 20140312
  Transmission Date: 20141002
  Serious: Yes (Other)
  Sender: FDA-Public Use
  Company Number: US-MYLANLABS-2014S1004785

PATIENT
  Age: 68 Year
  Sex: Female

DRUGS (2)
  1. TEMOZOLOMIDE [Suspect]
     Indication: SMALL CELL LUNG CANCER METASTATIC
     Dosage: 150 MG/M2 DAILY D1-5 Q28D
     Route: 048
  2. ETOPOSIDE [Suspect]
     Indication: SMALL CELL LUNG CANCER METASTATIC
     Dosage: 100 MG/M2 D1-10 Q28D
     Route: 048

REACTIONS (2)
  - Leukopenia [Unknown]
  - Lymphopenia [Unknown]
